FAERS Safety Report 12561095 (Version 1)
Quarter: 2016Q3

REPORT INFORMATION
  Report Type: Spontaneous
  Country: CA (occurrence: CA)
  Receive Date: 20160715
  Receipt Date: 20160715
  Transmission Date: 20161109
  Serious: Yes (Death, Other)
  Sender: FDA-Public Use
  Company Number: CA-MEDA-2016070062

PATIENT
  Sex: Female

DRUGS (2)
  1. CESAMET [Suspect]
     Active Substance: NABILONE
     Indication: NAUSEA
     Route: 048
  2. CESAMET [Suspect]
     Active Substance: NABILONE
     Indication: PAIN
     Route: 048

REACTIONS (4)
  - Rash generalised [Unknown]
  - Pemphigus [Unknown]
  - Death [Fatal]
  - Burning sensation [Unknown]

NARRATIVE: CASE EVENT DATE: 20160707
